FAERS Safety Report 9834934 (Version 1)
Quarter: 2014Q1

REPORT INFORMATION
  Report Type: Spontaneous
  Country: CN (occurrence: CN)
  Receive Date: 20140122
  Receipt Date: 20140122
  Transmission Date: 20141002
  Serious: Yes (Hospitalization)
  Sender: FDA-Public Use
  Company Number: CN-GLAXOSMITHKLINE-B0962242A

PATIENT
  Age: 40 Year
  Sex: Female

DRUGS (3)
  1. HEPTODIN [Suspect]
     Indication: HEPATITIS B
     Dosage: 1TAB PER DAY
     Route: 048
     Dates: start: 2005
  2. HEPSERA [Suspect]
     Indication: HEPATITIS B
     Dosage: 1TAB PER DAY
     Route: 048
     Dates: start: 201401
  3. INJECTION [Concomitant]
     Indication: PRODUCT USED FOR UNKNOWN INDICATION

REACTIONS (1)
  - Drug resistance [Unknown]
